FAERS Safety Report 4736834-3 (Version None)
Quarter: 2005Q3

REPORT INFORMATION
  Report Type: 
  Country: None (occurrence: None)
  Receive Date: 20050808
  Receipt Date: 20050131
  Transmission Date: 20060218
  Serious: Yes (Hospitalization)
  Sender: FDA-Public Use
  Company Number: 200510385FR

PATIENT
  Age: 56 Year
  Sex: Male

DRUGS (5)
  1. OFLOCET [Suspect]
     Indication: ABSCESS
     Route: 048
     Dates: start: 20041026, end: 20041208
  2. FLAGYL [Suspect]
     Indication: ABSCESS
     Route: 048
     Dates: start: 20041026, end: 20041209
  3. VANCOMYCIN [Suspect]
     Route: 042
     Dates: start: 20041104, end: 20041203
  4. AMBISOME [Suspect]
     Route: 042
     Dates: start: 20041126, end: 20041203
  5. ROCEPHIN [Concomitant]

REACTIONS (1)
  - NEUTROPENIA [None]
